FAERS Safety Report 19608877 (Version 1)
Quarter: 2021Q3

REPORT INFORMATION
  Report Type: Spontaneous
  Country: US (occurrence: US)
  Receive Date: 20210725
  Receipt Date: 20210725
  Transmission Date: 20211014
  Serious: No
  Sender: FDA-Public Use
  Company Number: None

PATIENT
  Age: 9 Year
  Sex: Female
  Weight: 30.6 kg

DRUGS (2)
  1. NEUTROGENA AGE SHIELD FACE OIL FREE SUNSCRN BR^D SPECT SPF 70 (AV\HOM\OCTI\OCTO) [Suspect]
     Active Substance: AVOBENZONE\HOMOSALATE\OCTISALATE\OCTOCRYLENE
     Indication: PROPHYLAXIS AGAINST SOLAR RADIATION
     Dosage: QUANTITY: 1 EVERY 80 MIN?FREQUENCY: EVERY 80 MIN
     Dates: start: 20210605, end: 20210606
  2. NEUTROGENA ULTRA SHEER BODY MIST SUNSCREEN BROAD SPECTRUM 70 (AVO\HOM\OCTI\OCTO) [Suspect]
     Active Substance: AVOBENZONE\HOMOSALATE\OCTISALATE\OCTOCRYLENE
     Indication: PROPHYLAXIS AGAINST SOLAR RADIATION
     Dosage: ?          QUANTITY:1 EVERY 80 MIN;OTHER FREQUENCY:EVERY 80 MIN;?
     Route: 061
     Dates: start: 20210605, end: 20210606

REACTIONS (2)
  - Application site burn [None]
  - Recalled product administered [None]

NARRATIVE: CASE EVENT DATE: 20210605
